FAERS Safety Report 15895697 (Version 2)
Quarter: 2019Q1

REPORT INFORMATION
  Report Type: Report from Study
  Country: US (occurrence: US)
  Receive Date: 20190131
  Receipt Date: 20190210
  Transmission Date: 20190417
  Serious: No
  Sender: FDA-Public Use
  Company Number: PHEH2019US004104

PATIENT
  Sex: Female
  Weight: 180 kg

DRUGS (1)
  1. ENTRESTO [Suspect]
     Active Substance: SACUBITRIL\VALSARTAN
     Indication: CARDIAC FAILURE CHRONIC
     Dosage: 50 MG (24/26 MG SACUITRIL/VALSARTAN), UNK
     Route: 048

REACTIONS (7)
  - Memory impairment [Unknown]
  - Blood pressure decreased [Unknown]
  - Confusional state [Unknown]
  - Anxiety [Unknown]
  - Depression [Unknown]
  - Blood pressure fluctuation [Unknown]
  - Mental fatigue [Unknown]
